FAERS Safety Report 21027808 (Version 2)
Quarter: 2022Q3

REPORT INFORMATION
  Report Type: Spontaneous
  Country: US (occurrence: US)
  Receive Date: 20220630
  Receipt Date: 20220701
  Transmission Date: 20221027
  Serious: No
  Sender: FDA-Public Use
  Company Number: US-PFIZER INC-202200907832

PATIENT
  Sex: Male

DRUGS (2)
  1. PAXLOVID [Suspect]
     Active Substance: NIRMATRELVIR\RITONAVIR
     Indication: COVID-19 treatment
     Dosage: TOOK TWO RITONAVIR TABLETS INSTEAD OF ONE NIRMATRELVIR AND ONE RITONAVIR TABLET
  2. PAXLOVID [Suspect]
     Active Substance: NIRMATRELVIR\RITONAVIR
     Dosage: TOOK TWO RITONAVIR TABLETS INSTEAD OF TWO NIRMATRELVIR TABLETS

REACTIONS (1)
  - Incorrect dose administered [Unknown]
